FAERS Safety Report 4758955-1 (Version None)
Quarter: 2005Q3

REPORT INFORMATION
  Report Type: 
  Country: None (occurrence: None)
  Receive Date: 20050826
  Receipt Date: 20050815
  Transmission Date: 20060218
  Serious: Yes (Other)
  Sender: FDA-Public Use
  Company Number: 2005115202

PATIENT
  Age: 58 Year
  Sex: Male

DRUGS (5)
  1. PREDNISONE [Suspect]
     Indication: PSORIASIS
     Dosage: ORAL
     Route: 048
     Dates: end: 20040101
  2. METHOTREXATE [Suspect]
     Indication: PSORIASIS
     Dosage: ORAL
     Route: 048
     Dates: start: 20040601
  3. NEGOTIGASON (ACITRETIN) [Suspect]
     Indication: PSORIASIS
     Dosage: ORAL
     Route: 048
     Dates: end: 20040101
  4. SANDIMMUNE [Suspect]
     Indication: PSORIASIS
     Dosage: ORAL
     Route: 048
     Dates: end: 20040101
  5. REMICADE [Suspect]
     Indication: PSORIASIS
     Dosage: INTRAVENOUS
     Route: 042
     Dates: start: 20040601

REACTIONS (2)
  - GINGIVITIS [None]
  - TOOTH DISORDER [None]
